FAERS Safety Report 25954084 (Version 1)
Quarter: 2025Q4

REPORT INFORMATION
  Report Type: Spontaneous
  Country: US (occurrence: US)
  Receive Date: 20251023
  Receipt Date: 20251023
  Transmission Date: 20260117
  Serious: Yes (Hospitalization)
  Sender: NOVO NORDISK
  Company Number: US-NOVOPROD-1544013

PATIENT
  Age: 78 Year
  Sex: Female

DRUGS (6)
  1. OZEMPIC [Suspect]
     Active Substance: SEMAGLUTIDE
     Indication: Type 2 diabetes mellitus
     Dosage: 0.25 MG, QW
     Route: 058
     Dates: start: 2024
  2. OZEMPIC [Suspect]
     Active Substance: SEMAGLUTIDE
     Dosage: 0.5 MG, QW
     Route: 058
     Dates: start: 2024
  3. OZEMPIC [Suspect]
     Active Substance: SEMAGLUTIDE
     Dosage: DOSE INCREASE: 2 MG
     Route: 058
     Dates: start: 2025
  4. OZEMPIC [Suspect]
     Active Substance: SEMAGLUTIDE
     Dosage: DOSE DECREASE: 1 MG
     Route: 058
     Dates: start: 202502
  5. OZEMPIC [Suspect]
     Active Substance: SEMAGLUTIDE
     Route: 058
     Dates: start: 202509
  6. NOVOLIN N [Suspect]
     Active Substance: INSULIN HUMAN
     Indication: Type 2 diabetes mellitus
     Dosage: 30 UNITS TWICE DAILY BEFORE MEALS, PRIOR TO STARTING OZEMPIC.
     Route: 058
     Dates: start: 2024, end: 202502

REACTIONS (5)
  - Cardiac failure congestive [Recovering/Resolving]
  - Pneumonia [Recovered/Resolved]
  - Asthenia [Recovered/Resolved]
  - Decreased appetite [Unknown]
  - Blood glucose increased [Unknown]

NARRATIVE: CASE EVENT DATE: 20250201
